FAERS Safety Report 25828807 (Version 1)
Quarter: 2025Q3

REPORT INFORMATION
  Report Type: Spontaneous
  Country: EU (occurrence: EU)
  Receive Date: 20250922
  Receipt Date: 20250922
  Transmission Date: 20251020
  Serious: Yes (Hospitalization)
  Sender: SANOFI AVENTIS
  Company Number: None

PATIENT
  Age: 37 Year
  Sex: Male
  Weight: 126 kg

DRUGS (2)
  1. DUPIXENT [Suspect]
     Active Substance: DUPILUMAB
     Indication: Dermatitis atopic
     Route: 058
     Dates: start: 20210929
  2. IBUPROFEN [Concomitant]
     Active Substance: IBUPROFEN
     Indication: Abscess neck
     Route: 048
     Dates: start: 20240601, end: 20240603

REACTIONS (1)
  - Abscess neck [Not Recovered/Not Resolved]

NARRATIVE: CASE EVENT DATE: 20240301
